FAERS Safety Report 4914250-9 (Version None)
Quarter: 2006Q1

REPORT INFORMATION
  Report Type: 
  Country: None (occurrence: None)
  Receive Date: 20060213
  Receipt Date: 20060206
  Transmission Date: 20060701
  Serious: Yes (Other)
  Sender: FDA-Public Use
  Company Number: 2006-02-0198

PATIENT
  Age: 65 Year
  Sex: Male

DRUGS (2)
  1. AERIUS (DESLORATADINE) TABLETS 'LIKE CLARINEX' [Suspect]
     Indication: RHINITIS ALLERGIC
     Dosage: 5 MG QD ORAL
     Route: 048
     Dates: start: 20051001, end: 20051201
  2. CO-DIOVAN (VALSARTAN/HYDROCHLOROTHIAZIDE) [Concomitant]

REACTIONS (1)
  - BLOOD PRESSURE INCREASED [None]
